FAERS Safety Report 10205442 (Version 1)
Quarter: 2020Q3

REPORT INFORMATION
  Report Type: Report from Study
  Country: TW (occurrence: TW)
  Receive Date: 20140529
  Receipt Date: 20140529
  Transmission Date: 20201105
  Serious: Yes (Hospitalization)
  Sender: FDA-Public Use
  Company Number: PHHY2014TW061980

PATIENT
  Age: 33 Year
  Sex: Female
  Weight: 71.5 kg

DRUGS (67)
  1. FOLINIC ACID [Suspect]
     Active Substance: LEUCOVORIN
     Indication: GASTROOESOPHAGEAL CANCER
     Dosage: 784 MG, 1 IN 2 WK
     Dates: end: 20130709
  2. METOCLOPRAMIDE. [Concomitant]
     Active Substance: METOCLOPRAMIDE
     Route: 048
     Dates: start: 20130819, end: 20130825
  3. SENNOSIDE [Concomitant]
     Active Substance: SENNOSIDES
     Indication: CONSTIPATION
     Dosage: 40 MG, UNK
     Route: 048
     Dates: start: 20130701, end: 20130707
  4. DIPHENHYDRAMINE HYDROCHLORIDE. [Concomitant]
     Active Substance: DIPHENHYDRAMINE HYDROCHLORIDE
     Indication: HYPERSENSITIVITY
     Dosage: 30 MG, UNK
     Route: 030
     Dates: start: 20130625, end: 20130709
  5. VITAMIN C [Concomitant]
     Active Substance: ASCORBIC ACID
     Indication: NUTRITIONAL SUPPLEMENTATION
     Dosage: 100 MG, UNK
     Route: 042
     Dates: start: 20130701, end: 20130703
  6. TROPISETRON [Concomitant]
     Active Substance: TROPISETRON
     Dosage: 5 MG, UNK
     Route: 048
     Dates: start: 20130909, end: 20130910
  7. TROPISETRON [Concomitant]
     Active Substance: TROPISETRON
     Dosage: 5 MG, UNK
     Route: 048
     Dates: start: 20130923, end: 20130924
  8. TROPISETRON [Concomitant]
     Active Substance: TROPISETRON
     Dosage: 5 MG, UNK
     Route: 048
     Dates: start: 20131104, end: 20131104
  9. APREPITANT. [Concomitant]
     Active Substance: APREPITANT
     Dosage: 80 MG, UNK
     Route: 048
     Dates: start: 20131023, end: 20131024
  10. ONARTUZUMAB. [Suspect]
     Active Substance: ONARTUZUMAB
     Route: 042
     Dates: start: 20130625
  11. METOCLOPRAMIDE. [Concomitant]
     Active Substance: METOCLOPRAMIDE
     Route: 048
     Dates: start: 20130812, end: 20130815
  12. DEXAMETHASONE. [Concomitant]
     Active Substance: DEXAMETHASONE
     Indication: VOMITING
     Dosage: 10 MG, UNK
     Route: 042
     Dates: start: 20130625, end: 20130709
  13. OXCARBAZEPINE. [Concomitant]
     Active Substance: OXCARBAZEPINE
     Indication: BACK PAIN
     Dosage: 300 MG, UNK
     Route: 048
     Dates: start: 20130626, end: 20130723
  14. ACETYLCYSTEINE. [Concomitant]
     Active Substance: ACETYLCYSTEINE
     Indication: COUGH
     Dosage: 200 MG, UNK
     Route: 048
     Dates: start: 20130628, end: 20130701
  15. DIPHENHYDRAMINE HYDROCHLORIDE. [Concomitant]
     Active Substance: DIPHENHYDRAMINE HYDROCHLORIDE
     Dosage: 30 MG, UNK
     Route: 030
     Dates: start: 20130812, end: 20131119
  16. ACEMETACIN [Concomitant]
     Active Substance: ACEMETACIN
     Indication: BACK PAIN
     Dosage: 60 MG, UNK
     Route: 048
     Dates: start: 20130617, end: 20130623
  17. APREPITANT. [Concomitant]
     Active Substance: APREPITANT
     Dosage: 125 MG, UNK
     Route: 048
     Dates: start: 20130924, end: 20130924
  18. FLUOROURACIL. [Suspect]
     Active Substance: FLUOROURACIL
     Indication: GASTROOESOPHAGEAL CANCER
     Route: 040
     Dates: start: 20130625
  19. METOCLOPRAMIDE. [Concomitant]
     Active Substance: METOCLOPRAMIDE
     Dosage: 5 MG, UNK
     Route: 042
  20. TRAMADOL. [Concomitant]
     Active Substance: TRAMADOL
     Dosage: 100 MG, UNK
     Route: 048
     Dates: start: 20130619, end: 20130723
  21. MOSAPRIDE [Concomitant]
     Active Substance: MOSAPRIDE
     Indication: ABDOMINAL PAIN UPPER
     Dosage: 5 MG, UNK
     Route: 048
     Dates: start: 20130628, end: 20130701
  22. ARTHROTEC [Concomitant]
     Active Substance: DICLOFENAC SODIUM\MISOPROSTOL
     Indication: BACK PAIN
     Dosage: 1 DF, UNK
     Route: 048
     Dates: start: 20130613, end: 20130619
  23. TROPISETRON [Concomitant]
     Active Substance: TROPISETRON
     Dosage: 5 MG, UNK
     Route: 048
     Dates: start: 20131021, end: 20131022
  24. FLUOROURACIL. [Suspect]
     Active Substance: FLUOROURACIL
     Dosage: 4704 MG, 1 IN 2 WK
     Route: 042
     Dates: end: 20130709
  25. ONARTUZUMAB. [Suspect]
     Active Substance: ONARTUZUMAB
     Dosage: 814 MG, 1 IN 2 WK
     Route: 042
     Dates: end: 20130709
  26. METOCLOPRAMIDE. [Concomitant]
     Active Substance: METOCLOPRAMIDE
     Dosage: 5 MG, UNK
     Route: 048
  27. TENOFOVIR [Concomitant]
     Active Substance: TENOFOVIR
     Indication: VIRAL HEPATITIS CARRIER
     Dosage: 300 MG, UNK
     Route: 048
     Dates: start: 20130529
  28. ESTAZOLAM. [Concomitant]
     Active Substance: ESTAZOLAM
     Indication: INSOMNIA
     Dosage: 2 MG, UNK
     Route: 048
     Dates: start: 20130701, end: 20130707
  29. SIMETHICONE (DIMETHICONE) [Concomitant]
     Active Substance: DIMETHICONE
     Indication: ABDOMINAL DISTENSION
     Dosage: 40 MG, UNK
     Route: 048
     Dates: start: 20130701, end: 20130707
  30. SIMETHICONE (DIMETHICONE) [Concomitant]
     Active Substance: DIMETHICONE
     Dosage: 40 MG, UNK
     Route: 048
     Dates: start: 20130709, end: 20130722
  31. COLISO [Concomitant]
     Indication: COUGH
     Dosage: 7 ML, UNK
     Route: 048
     Dates: start: 20130628
  32. TROPISETRON [Concomitant]
     Active Substance: TROPISETRON
     Dosage: 5 MG, UNK
     Route: 048
     Dates: start: 20131007, end: 20131008
  33. FOLINIC ACID [Suspect]
     Active Substance: LEUCOVORIN
     Dates: start: 20130625
  34. FLUOROURACIL. [Suspect]
     Active Substance: FLUOROURACIL
     Dosage: 784 MG, 1 IN 2 WK
     Route: 040
     Dates: end: 20130709
  35. DEXAMETHASONE. [Concomitant]
     Active Substance: DEXAMETHASONE
     Dosage: 10 MG, UNK
     Route: 042
     Dates: start: 20130812, end: 20131119
  36. TRAMADOL. [Concomitant]
     Active Substance: TRAMADOL
     Indication: BACK PAIN
     Dosage: 100 MG, UNK
     Route: 048
     Dates: start: 20130626, end: 20130723
  37. IMIPRAMINE [Concomitant]
     Active Substance: IMIPRAMINE
     Indication: BACK PAIN
     Dosage: 10 MG, UNK
     Route: 048
     Dates: start: 20130619, end: 20130625
  38. TROPISETRON [Concomitant]
     Active Substance: TROPISETRON
     Dosage: 5 MG, UNK
     Route: 048
     Dates: start: 20130826, end: 20130827
  39. APREPITANT. [Concomitant]
     Active Substance: APREPITANT
     Dosage: 80 MG, UNK
     Route: 048
     Dates: start: 20130925, end: 20130926
  40. APREPITANT. [Concomitant]
     Active Substance: APREPITANT
     Dosage: 125 MG, UNK
     Route: 048
     Dates: start: 20131008, end: 20131008
  41. OXALIPLATIN. [Suspect]
     Active Substance: OXALIPLATIN
     Route: 042
     Dates: start: 20130625
  42. FLUOROURACIL. [Suspect]
     Active Substance: FLUOROURACIL
     Route: 042
     Dates: start: 20130625
  43. METOCLOPRAMIDE. [Concomitant]
     Active Substance: METOCLOPRAMIDE
     Route: 042
  44. DEXAMETHASONE. [Concomitant]
     Active Substance: DEXAMETHASONE
     Dosage: 4 MG, UNK
     Route: 048
     Dates: start: 20130709, end: 20130711
  45. PALONOSETRON. [Concomitant]
     Active Substance: PALONOSETRON HYDROCHLORIDE
     Indication: VOMITING
     Dosage: 0.25 MG, UNK
     Route: 042
     Dates: start: 20130625, end: 20130709
  46. OXCARBAZEPINE. [Concomitant]
     Active Substance: OXCARBAZEPINE
     Dosage: 300 MG, UNK
     Route: 048
     Dates: start: 20130619, end: 20130723
  47. ESTAZOLAM. [Concomitant]
     Active Substance: ESTAZOLAM
     Dosage: 2 MG, UNK
     Route: 048
     Dates: start: 20130709, end: 20130722
  48. ALPRAZOLAM. [Concomitant]
     Active Substance: ALPRAZOLAM
     Indication: BACK PAIN
     Dosage: 0.5 MG, UNK
     Route: 048
     Dates: start: 20130619, end: 20130625
  49. TROPISETRON [Concomitant]
     Active Substance: TROPISETRON
     Indication: VOMITING
     Dosage: 5 MG, UNK
     Route: 048
  50. APREPITANT. [Concomitant]
     Active Substance: APREPITANT
     Indication: VOMITING
     Dosage: 125 MG, UNK
     Route: 048
     Dates: start: 20130827, end: 20130827
  51. APREPITANT. [Concomitant]
     Active Substance: APREPITANT
     Dosage: 80 MG, UNK
     Route: 048
     Dates: start: 20130828, end: 20130829
  52. OXALIPLATIN. [Suspect]
     Active Substance: OXALIPLATIN
     Dosage: 166 MG, 1 IN 2 WK
     Route: 042
     Dates: end: 20130709
  53. METOCLOPRAMIDE. [Concomitant]
     Active Substance: METOCLOPRAMIDE
     Route: 042
     Dates: start: 20130812, end: 20130819
  54. ZOPICLONE [Concomitant]
     Active Substance: ZOPICLONE
     Indication: INSOMNIA
     Dosage: 7.5 MG, UNK
     Route: 048
     Dates: start: 20130626, end: 20130723
  55. SENNOSIDE [Concomitant]
     Active Substance: SENNOSIDES
     Dosage: 40 MG, UNK
     Route: 048
     Dates: start: 20130826
  56. ESOMEPRAZOLE. [Concomitant]
     Active Substance: ESOMEPRAZOLE MAGNESIUM
     Indication: CONSTIPATION
     Dosage: 40 MG, UNK
     Route: 048
  57. APREPITANT. [Concomitant]
     Active Substance: APREPITANT
     Dosage: 125 MG, UNK
     Route: 048
     Dates: start: 20130910, end: 20130910
  58. APREPITANT. [Concomitant]
     Active Substance: APREPITANT
     Dosage: 80 MG, UNK
     Route: 048
     Dates: start: 20130911, end: 20130912
  59. APREPITANT. [Concomitant]
     Active Substance: APREPITANT
     Dosage: 125 MG, UNK
     Route: 048
     Dates: start: 20131022, end: 20131022
  60. METOCLOPRAMIDE. [Concomitant]
     Active Substance: METOCLOPRAMIDE
     Dosage: 10 MG, UNK
     Route: 042
  61. PALONOSETRON. [Concomitant]
     Active Substance: PALONOSETRON HYDROCHLORIDE
     Dosage: 0.25 MG, UNK
     Route: 042
     Dates: start: 20130812, end: 20131119
  62. MAGNESIUM OXIDE. [Concomitant]
     Active Substance: MAGNESIUM OXIDE
     Indication: CONSTIPATION
     Dosage: 500 MG, UNK
     Route: 048
     Dates: start: 20130701, end: 20130707
  63. FLUDIAZEPAM [Concomitant]
     Active Substance: FLUDIAZEPAM
     Indication: BACK PAIN
     Dosage: 0.25 MG, UNK
     Route: 048
     Dates: start: 20130617, end: 20130623
  64. VITAMIN B COMPLEX [Concomitant]
     Active Substance: CYANOCOBALAMIN\DEXPANTHENOL\NIACINAMIDE\PYRIDOXINE HYDROCHLORIDE\RIBOFLAVIN 5^-PHOSPHATE SODIUM\THIAMINE HYDROCHLORIDE\VITAMIN B COMPLEX
     Indication: NUTRITIONAL SUPPLEMENTATION
     Dosage: 1 ML, UNK
     Route: 042
     Dates: start: 20130701, end: 20130703
  65. FUROSEMIDE. [Concomitant]
     Active Substance: FUROSEMIDE
     Indication: OEDEMA PERIPHERAL
     Dosage: 40 MG, UNK
     Route: 048
     Dates: start: 20130923, end: 20130928
  66. FUROSEMIDE. [Concomitant]
     Active Substance: FUROSEMIDE
     Dosage: 40 MG, UNK
     Route: 048
     Dates: start: 20131007, end: 20131012
  67. APREPITANT. [Concomitant]
     Active Substance: APREPITANT
     Dosage: 80 MG, UNK
     Route: 048
     Dates: start: 20131009, end: 20131010

REACTIONS (6)
  - Colitis [Recovered/Resolved]
  - Pyrexia [Recovering/Resolving]
  - Retroperitoneal abscess [Unknown]
  - Peritonitis [Unknown]
  - Abdominal pain [Recovering/Resolving]
  - Chills [Unknown]

NARRATIVE: CASE EVENT DATE: 20130713
